FAERS Safety Report 9039007 (Version 1)
Quarter: 2013Q1

REPORT INFORMATION
  Report Type: Spontaneous
  Country: US (occurrence: None)
  Receive Date: 20130123
  Receipt Date: 20130123
  Transmission Date: 20140127
  Serious: Yes (Hospitalization)
  Sender: FDA-Public Use
  Company Number: None

PATIENT
  Age: 42 Year
  Sex: Female
  Weight: 98.43 kg

DRUGS (1)
  1. LEVORA [Suspect]
     Indication: MENORRHAGIA
     Route: 048
     Dates: start: 20121223, end: 20130107

REACTIONS (5)
  - Muscle spasms [None]
  - Middle insomnia [None]
  - Blood potassium decreased [None]
  - Deep vein thrombosis [None]
  - Pulmonary embolism [None]
